FAERS Safety Report 8326923-9 (Version None)
Quarter: 2012Q2

REPORT INFORMATION
  Report Type: 
  Country: None (occurrence: None)
  Receive Date: 20120501
  Receipt Date: 20120417
  Transmission Date: 20120825
  Serious: Yes (Other)
  Sender: FDA-Public Use
  Company Number: CHPA2012US009534

PATIENT
  Age: 75 Year
  Sex: Male

DRUGS (1)
  1. GAS-X EXTRA STRENGTH SOFTGELS [Suspect]
     Indication: FLATULENCE
     Dosage: 2 TO 4 SOFTGELS
     Route: 048
     Dates: start: 20070101

REACTIONS (3)
  - PARKINSON'S DISEASE [None]
  - OFF LABEL USE [None]
  - PROSTATE CANCER [None]
